FAERS Safety Report 7827100-8 (Version None)
Quarter: 2011Q4

REPORT INFORMATION
  Report Type: 
  Country: None (occurrence: None)
  Receive Date: 20111018
  Receipt Date: 20111003
  Transmission Date: 20120403
  Serious: Yes (Hospitalization, Other)
  Sender: FDA-Public Use
  Company Number: 1000024588

PATIENT
  Age: 10 Year
  Sex: Male
  Weight: 35.4 kg

DRUGS (2)
  1. ESCITALOPRAM (ESCITALOPRAM OXALATE) (TABLETS) [Suspect]
     Dosage: 10 M (10 MG, 1 IN 1 D),ORAL
     Route: 048
  2. ATOMOXETINE (ATOMOXETINE) (CAPSULES)-(ATOMOXETINE) [Concomitant]

REACTIONS (2)
  - NEUTROPENIA [None]
  - LEUKOPENIA [None]
